FAERS Safety Report 7033497-1 (Version None)
Quarter: 2010Q4

REPORT INFORMATION
  Report Type: 
  Country: None (occurrence: None)
  Receive Date: 20101007
  Receipt Date: 20100929
  Transmission Date: 20110411
  Serious: Yes (Other)
  Sender: FDA-Public Use
  Company Number: US-AMGEN-QUU438082

PATIENT
  Sex: Female
  Weight: 27.7 kg

DRUGS (3)
  1. NPLATE [Suspect]
     Indication: IDIOPATHIC THROMBOCYTOPENIC PURPURA
     Route: 058
     Dates: start: 20091009
  2. AZATHIOPRINE [Concomitant]
     Dates: start: 20090821
  3. DEXAMETHASONE [Concomitant]
     Dates: start: 20100408

REACTIONS (1)
  - THERAPEUTIC RESPONSE DECREASED [None]
